FAERS Safety Report 12476332 (Version 2)
Quarter: 2016Q3

REPORT INFORMATION
  Report Type: Spontaneous
  Country: AU (occurrence: AU)
  Receive Date: 20160617
  Receipt Date: 20160810
  Transmission Date: 20161109
  Serious: Yes (Other)
  Sender: FDA-Public Use
  Company Number: AU-PFIZER INC-2016256843

PATIENT
  Age: 78 Year
  Sex: Female

DRUGS (18)
  1. CAL-600 [Concomitant]
     Indication: OSTEOPOROTIC FRACTURE
     Dosage: 1500 MG, DAILY
  2. CARTIA /00002701/ [Concomitant]
     Active Substance: ASPIRIN
     Indication: ATRIAL FIBRILLATION
     Dosage: 100 MG, DAILY
  3. MAGNESIUM ASPARTATE [Concomitant]
     Active Substance: MAGNESIUM ASPARTATE
     Indication: TACHYCARDIA
     Dosage: 1000 MG, 2X/DAY
  4. METOPROLOL. [Concomitant]
     Active Substance: METOPROLOL
     Indication: ATRIAL FIBRILLATION
  5. EZETROL [Concomitant]
     Active Substance: EZETIMIBE
     Indication: HYPERCHOLESTEROLAEMIA
     Dosage: 10 MG, DAILY (MORNING)
  6. NILSTAT /00036501/ [Concomitant]
     Indication: CANDIDA INFECTION
     Dosage: 500000 UNITS, 2 TABLETS 3X/DAY
  7. ALDACTONE [Concomitant]
     Active Substance: SPIRONOLACTONE
     Indication: ATRIAL FIBRILLATION
     Dosage: 25 MG, DAILY
  8. AMILORIDE HYDROCHLORIDE. [Concomitant]
     Active Substance: AMILORIDE HYDROCHLORIDE
     Indication: HYPERTENSION
     Dosage: 5 MG, 2X DAILY
  9. OSTELIN VITAMIN D [Concomitant]
     Active Substance: CHOLECALCIFEROL
     Indication: OSTEOPOROTIC FRACTURE
     Dosage: 1000 UNITS, DAILY
  10. LYRICA [Concomitant]
     Active Substance: PREGABALIN
     Indication: PAIN
     Dosage: 75 MG, 1X/DAY
  11. TRITACE [Concomitant]
     Active Substance: RAMIPRIL
     Indication: HYPERTENSION
     Dosage: 5 MG, DAILY (MORNING)
  12. ZINCAPS [Concomitant]
     Indication: OSTEOPOROTIC FRACTURE
     Dosage: 220 MG, DAILY
  13. CELLUFRESH MD [Concomitant]
     Indication: DRY EYE
     Dosage: 5MG/ML (0.5%) 3 MORNING
  14. PANADEINE /00116401/ [Concomitant]
     Active Substance: ACETAMINOPHEN\CODEINE PHOSPHATE
     Indication: RHEUMATOID ARTHRITIS
     Dosage: 500MG/30MG 0.5 TWICE DAY WHEN NEEDED
  15. XELJANZ [Suspect]
     Active Substance: TOFACITINIB CITRATE
     Indication: RHEUMATOID ARTHRITIS
     Dosage: 5 MG, 2X/DAY
     Route: 048
     Dates: start: 20151012, end: 20160220
  16. PANADOL [Concomitant]
     Active Substance: ACETAMINOPHEN
     Indication: RHEUMATOID ARTHRITIS
     Dosage: 665 MG, 3X/DAY
  17. MACU-VISION [Concomitant]
     Indication: AGE-RELATED MACULAR DEGENERATION
     Dosage: 250MG/40MG/1MG, 1 TAB DAILY
  18. FISH OIL [Concomitant]
     Active Substance: FISH OIL
     Indication: RHEUMATOID ARTHRITIS
     Dosage: 1000 MG, 4X/DAY

REACTIONS (4)
  - Atrial fibrillation [Recovered/Resolved]
  - Disease recurrence [Recovered/Resolved]
  - Tremor [Recovered/Resolved]
  - Gait disturbance [Recovered/Resolved]

NARRATIVE: CASE EVENT DATE: 20160202
